FAERS Safety Report 10344738 (Version 3)
Quarter: 2014Q4

REPORT INFORMATION
  Report Type: Spontaneous
  Country: US (occurrence: None)
  Receive Date: 20140723
  Receipt Date: 20141020
  Transmission Date: 20150528
  Serious: Yes (Death, Hospitalization)
  Sender: FDA-Public Use
  Company Number: 2014VID00015

PATIENT
  Age: 9 Year
  Sex: Male
  Weight: 34 kg

DRUGS (4)
  1. ACTIMMUNE [Suspect]
     Active Substance: INTERFERON GAMMA-1B
     Indication: NEUTROPHIL FUNCTION DISORDER
     Dosage: 50 UG, 3X/WEEK, SUBCUTANEOUS?
     Route: 058
     Dates: start: 20121109
  2. VALPROIC ACID. [Concomitant]
     Active Substance: VALPROIC ACID
  3. FORTAZ [Concomitant]
     Active Substance: CEFTAZIDIME SODIUM
  4. ZYVOX [Concomitant]
     Active Substance: LINEZOLID

REACTIONS (4)
  - Hospitalisation [None]
  - Acute respiratory distress syndrome [None]
  - Off label use [None]
  - Sepsis [None]
